FAERS Safety Report 12448548 (Version 1)
Quarter: 2016Q2

REPORT INFORMATION
  Report Type: Spontaneous
  Country: US (occurrence: US)
  Receive Date: 20160608
  Receipt Date: 20160608
  Transmission Date: 20160815
  Serious: No
  Sender: FDA-Public Use
  Company Number: US-MDT-ADR-2016-01037

PATIENT

DRUGS (19)
  1. DULOXETINE HCL [Suspect]
     Active Substance: DULOXETINE HYDROCHLORIDE
     Route: 048
  2. ESTRADIOL. [Suspect]
     Active Substance: ESTRADIOL
     Route: 048
  3. METRONIDAZOLE. [Suspect]
     Active Substance: METRONIDAZOLE
     Route: 067
  4. PREMARIN [Suspect]
     Active Substance: ESTROGENS, CONJUGATED
     Dosage: 0.5 G
     Route: 067
  5. CHOLECALCIFEROL [Suspect]
     Active Substance: CHOLECALCIFEROL
     Dosage: 1000 UNITS
     Route: 048
  6. DETROL LA [Suspect]
     Active Substance: TOLTERODINE TARTRATE
  7. DEXLANSOPRAZOLE [Suspect]
     Active Substance: DEXLANSOPRAZOLE
     Route: 048
  8. DOCUSATE SODIUM. [Suspect]
     Active Substance: DOCUSATE SODIUM
     Route: 048
  9. LEVOCETIRIZINE DIHYDROCHLORIDE. [Suspect]
     Active Substance: LEVOCETIRIZINE DIHYDROCHLORIDE
     Dosage: 2.5 MG/5ML
     Route: 048
  10. TUMERIC [Suspect]
     Active Substance: TURMERIC
     Route: 048
  11. MULTIPLE VITAMIN [Suspect]
     Active Substance: VITAMINS
     Route: 048
  12. TOLTERODINE TARTRATE. [Suspect]
     Active Substance: TOLTERODINE TARTRATE
     Route: 048
  13. FLUTICASONE SALMETEROL [Suspect]
     Active Substance: FLUTICASONE PROPIONATE\SALMETEROL XINAFOATE
     Dosage: 250-50 MCG
     Route: 055
  14. LIORESAL [Suspect]
     Active Substance: BACLOFEN
  15. BIOTIN [Suspect]
     Active Substance: BIOTIN
     Route: 048
  16. ALBUTEROL SULFATE. [Suspect]
     Active Substance: ALBUTEROL SULFATE
     Route: 055
  17. BUSPIRONE HCL [Suspect]
     Active Substance: BUSPIRONE HYDROCHLORIDE
     Route: 048
  18. ESTROGENS CONJUGATED CREAM [Suspect]
     Active Substance: ESTROGENS, CONJUGATED
     Dosage: 0.5 G
     Route: 067
  19. FLUTICASONE FUROATE [Suspect]
     Active Substance: FLUTICASONE FUROATE
     Dosage: 27.5 MCG
     Route: 045

REACTIONS (1)
  - Drug hypersensitivity [Unknown]
